FAERS Safety Report 5633694-3 (Version None)
Quarter: 2008Q1

REPORT INFORMATION
  Report Type: 
  Country: None (occurrence: None)
  Receive Date: 20080221
  Receipt Date: 20080207
  Transmission Date: 20080703
  Serious: Yes (Other)
  Sender: FDA-Public Use
  Company Number: IL-GENENTECH-255593

PATIENT
  Age: 55 Year
  Sex: Male

DRUGS (5)
  1. MABTHERA [Suspect]
     Indication: LYMPHOMA
     Dosage: UNK, UNKNOWN
     Route: 065
     Dates: start: 20050825, end: 20051208
  2. CYCLOPHOSPHAMIDE [Suspect]
     Indication: LYMPHOMA
     Dosage: UNK, UNKNOWN
     Route: 065
     Dates: start: 20050825, end: 20051208
  3. DOXORUBICIN HCL [Suspect]
     Indication: LYMPHOMA
     Dosage: UNK, UNKNOWN
     Route: 065
     Dates: start: 20050825, end: 20051208
  4. PREDNISONE TAB [Suspect]
     Indication: LYMPHOMA
     Dosage: UNK, UNKNOWN
     Route: 065
     Dates: start: 20050825, end: 20051208
  5. VINCRISTINE [Suspect]
     Indication: LYMPHOMA
     Dosage: UNK, UNKNOWN
     Route: 065
     Dates: start: 20050825, end: 20051208

REACTIONS (3)
  - B-CELL LYMPHOMA [None]
  - HUMAN HERPESVIRUS 8 INFECTION [None]
  - KAPOSI'S SARCOMA [None]
